FAERS Safety Report 14443807 (Version 3)
Quarter: 2018Q1

REPORT INFORMATION
  Report Type: Spontaneous
  Country: US (occurrence: US)
  Receive Date: 20180125
  Receipt Date: 20180322
  Transmission Date: 20180509
  Serious: Yes (Hospitalization)
  Sender: FDA-Public Use
  Company Number: US-ACTELION-A-NJ2018-166080

PATIENT
  Age: 23 Month
  Sex: Female

DRUGS (1)
  1. TRACLEER [Suspect]
     Active Substance: BOSENTAN
     Indication: PULMONARY ARTERIAL HYPERTENSION
     Dosage: 11.25 MG, BID
     Route: 048
     Dates: start: 20171129

REACTIONS (3)
  - Dyspnoea [Unknown]
  - Respiratory tract infection [Unknown]
  - Corona virus infection [Unknown]
